FAERS Safety Report 16500284 (Version 1)
Quarter: 2019Q3

REPORT INFORMATION
  Report Type: Spontaneous
  Country: IT (occurrence: IT)
  Receive Date: 20190701
  Receipt Date: 20190701
  Transmission Date: 20191004
  Serious: Yes (Other)
  Sender: FDA-Public Use
  Company Number: IT-ACCORD-135938

PATIENT
  Age: 51 Year
  Sex: Female
  Weight: 70 kg

DRUGS (2)
  1. PERJETA [Suspect]
     Active Substance: PERTUZUMAB
     Indication: BREAST NEOPLASM
     Dosage: STRENGTH 420 MG
     Dates: start: 20190314, end: 20190523
  2. PACLITAXEL ACCORD HEALTHCARE [Suspect]
     Active Substance: PACLITAXEL
     Indication: BREAST NEOPLASM
     Dosage: STRENGTH 6 MG / ML,CONCENTRATE FOR SOLUTION
     Route: 042
     Dates: start: 20190315, end: 20190523

REACTIONS (3)
  - Proctalgia [Recovered/Resolved]
  - Haemorrhoidal haemorrhage [Recovered/Resolved]
  - Diarrhoea [Recovered/Resolved]

NARRATIVE: CASE EVENT DATE: 20190605
